FAERS Safety Report 17281299 (Version 1)
Quarter: 2020Q1

REPORT INFORMATION
  Report Type: Spontaneous
  Country: US (occurrence: US)
  Receive Date: 20200117
  Receipt Date: 20200117
  Transmission Date: 20200409
  Serious: No
  Sender: FDA-Public Use
  Company Number: US-AUROBINDO-AUR-APL-2019-002224

PATIENT

DRUGS (1)
  1. DEXTROAMPHET SACCHARAT, AMPHET ASPARTATE, DEXTROAMPHET SULFATE AND AMPHET SULFAT [Suspect]
     Active Substance: AMPHETAMINE ASPARTATE\AMPHETAMINE SULFATE\DEXTROAMPHETAMINE SACCHARATE\DEXTROAMPHETAMINE SULFATE
     Indication: PRODUCT USED FOR UNKNOWN INDICATION
     Dosage: UNK
     Route: 065

REACTIONS (16)
  - Frequent bowel movements [Not Recovered/Not Resolved]
  - Product substitution issue [Unknown]
  - Hypoaesthesia [Recovered/Resolved]
  - Depression [Not Recovered/Not Resolved]
  - Migraine [Unknown]
  - Gastrointestinal disorder [Recovered/Resolved]
  - Diarrhoea [Unknown]
  - Dehydration [Unknown]
  - Mood swings [Not Recovered/Not Resolved]
  - Tachyphrenia [Not Recovered/Not Resolved]
  - Thinking abnormal [Unknown]
  - Gastrointestinal hypermotility [Not Recovered/Not Resolved]
  - Disturbance in attention [Unknown]
  - Pain in extremity [Recovered/Resolved]
  - Anxiety [Unknown]
  - Drug ineffective [Unknown]
